FAERS Safety Report 7832720-0 (Version None)
Quarter: 2011Q4

REPORT INFORMATION
  Report Type: 
  Country: None (occurrence: None)
  Receive Date: 20111024
  Receipt Date: 20111014
  Transmission Date: 20120403
  Serious: No
  Sender: FDA-Public Use
  Company Number: US-BIOGENIDEC-2011BI039378

PATIENT
  Age: 41 Year
  Sex: Female

DRUGS (4)
  1. TYLENOL-500 [Concomitant]
     Indication: PREMEDICATION
  2. CLARITIN [Concomitant]
     Indication: PREMEDICATION
  3. TYSABRI [Suspect]
     Indication: MULTIPLE SCLEROSIS
     Route: 042
     Dates: start: 20110608
  4. ASPIRIN [Concomitant]
     Indication: PRODUCT USED FOR UNKNOWN INDICATION

REACTIONS (7)
  - FOOT FRACTURE [None]
  - FATIGUE [None]
  - SLUGGISHNESS [None]
  - NAIL AVULSION [None]
  - LOSS OF CONTROL OF LEGS [None]
  - FALL [None]
  - PAIN [None]
